FAERS Safety Report 6587872-X (Version None)
Quarter: 2010Q1

REPORT INFORMATION
  Report Type: 
  Country: None (occurrence: None)
  Receive Date: 20100218
  Receipt Date: 20100209
  Transmission Date: 20100710
  Serious: Yes (Other)
  Sender: FDA-Public Use
  Company Number: US-ASTRAZENECA-2010SE05840

PATIENT
  Sex: Female

DRUGS (2)
  1. TOPROL-XL [Suspect]
     Route: 048
  2. FOSAMAX [Suspect]
     Route: 065

REACTIONS (10)
  - CATHETERISATION CARDIAC [None]
  - DRUG INEFFECTIVE [None]
  - GALLBLADDER OPERATION [None]
  - GOUTY ARTHRITIS [None]
  - HYPERSENSITIVITY [None]
  - KNEE OPERATION [None]
  - MUSCLE SPASMS [None]
  - OESOPHAGEAL DISCOMFORT [None]
  - STRESS [None]
  - THYROIDECTOMY [None]
